FAERS Safety Report 5117058-7 (Version None)
Quarter: 2006Q3

REPORT INFORMATION
  Report Type: 
  Country: None (occurrence: None)
  Receive Date: 20060925
  Receipt Date: 20060912
  Transmission Date: 20061208
  Serious: Yes (Hospitalization, Other)
  Sender: FDA-Public Use
  Company Number: 2006110918

PATIENT
  Age: 68 Year
  Sex: Female

DRUGS (12)
  1. NIFEDIPINE [Suspect]
     Dosage: 40 MG, ORAL
     Route: 048
     Dates: start: 19970401, end: 20020801
  2. LITHIUM CARBONATE [Concomitant]
  3. CARDENALIN (DOXAZOSIN) [Concomitant]
  4. ENALAPRIL MALEATE [Concomitant]
  5. KESELAN (HALOPERIDOL) [Concomitant]
  6. CHLORPROMAZINE HCL [Concomitant]
  7. TASMOLIN (BIPERIDEN) [Concomitant]
  8. SUNNYASE (ENZYMES NOS) [Concomitant]
  9. AMOBAN (ZOPICLONE) [Concomitant]
  10. NITRAZEPAM [Concomitant]
  11. PURSENNID (SENNA LEAF) [Concomitant]
  12. ISOSORBIDE DINITRATE [Concomitant]

REACTIONS (7)
  - DRUG ERUPTION [None]
  - HYPERKERATOSIS [None]
  - LICHENOID KERATOSIS [None]
  - LIP AND/OR ORAL CAVITY CANCER [None]
  - ORAL LICHEN PLANUS [None]
  - PSORIASIS [None]
  - SCHIZOPHRENIA [None]
